FAERS Safety Report 7581985-1 (Version None)
Quarter: 2011Q2

REPORT INFORMATION
  Report Type: 
  Country: None (occurrence: None)
  Receive Date: 20110630
  Receipt Date: 20110621
  Transmission Date: 20111010
  Serious: Yes (Hospitalization)
  Sender: FDA-Public Use
  Company Number: US-BIOGENIDEC-2011BI007092

PATIENT
  Age: 61 Year
  Sex: Female

DRUGS (1)
  1. AVONEX [Suspect]
     Indication: MULTIPLE SCLEROSIS
     Route: 030
     Dates: start: 19990528

REACTIONS (5)
  - CHONDRECTOMY [None]
  - DELAYED RECOVERY FROM ANAESTHESIA [None]
  - ROAD TRAFFIC ACCIDENT [None]
  - ABDOMINAL INJURY [None]
  - IODINE ALLERGY [None]
